FAERS Safety Report 12425520 (Version 1)
Quarter: 2016Q2

REPORT INFORMATION
  Report Type: Spontaneous
  Country: None (occurrence: US)
  Receive Date: 20160601
  Receipt Date: 20160601
  Transmission Date: 20160815
  Serious: No
  Sender: FDA-Public Use
  Company Number: US-ZYDUS-011194

PATIENT
  Age: 63 Year
  Sex: Female

DRUGS (11)
  1. HYDROCHLOROTHIAZIDE. [Concomitant]
     Active Substance: HYDROCHLOROTHIAZIDE
     Indication: HYPERTENSION
  2. MORPHINE/MORPHINE HYDROCHLORIDE/MORPHINE SULFATE/MORPHINE TARTRATE [Suspect]
     Active Substance: MORPHINE\MORPHINE HYDROCHLORIDE\MORPHINE SULFATE\MORPHINE TARTRATE
     Indication: OSTEOMYELITIS
     Route: 048
     Dates: start: 20150929, end: 20151007
  3. CLONAZEPAM. [Concomitant]
     Active Substance: CLONAZEPAM
     Indication: ANXIETY
  4. VITAMINS NOS [Concomitant]
     Active Substance: VITAMINS
     Indication: SUPPLEMENTATION THERAPY
  5. LEVOTHYROXINE/LEVOTHYROXINE SODIUM [Concomitant]
     Indication: HYPOTHYROIDISM
  6. CYANOCOBALAMIN. [Concomitant]
     Active Substance: CYANOCOBALAMIN
     Indication: SUPPLEMENTATION THERAPY
  7. IBUPROFEN. [Concomitant]
     Active Substance: IBUPROFEN
     Indication: OSTEOMYELITIS
     Dosage: EVERY 12 HOURS
  8. CIPROFLOXACIN/CIPROFLOXACIN HYDROCHLORIDE/CIPROFLOXACIN LACTATE [Concomitant]
     Indication: OSTEOMYELITIS
     Dosage: DAILY
  9. COLECALCIFEROL [Concomitant]
     Active Substance: CHOLECALCIFEROL
     Indication: SUPPLEMENTATION THERAPY
  10. OXYCODONE [Concomitant]
     Active Substance: OXYCODONE
     Indication: OSTEOMYELITIS
     Dosage: 15 MG EVERY 6 HOURS
  11. FERROUS AMINOPROPANE DICARBOXY/FERROUS ASCORBATE/FERROUS ASPARTATE/FERROUS CARBONATE/FERROUS CHLORID [Concomitant]
     Indication: SUPPLEMENTATION THERAPY

REACTIONS (2)
  - Drug ineffective [Unknown]
  - Feeling abnormal [Unknown]

NARRATIVE: CASE EVENT DATE: 2015
